FAERS Safety Report 6952830-X (Version None)
Quarter: 2010Q3

REPORT INFORMATION
  Report Type: 
  Country: None (occurrence: None)
  Receive Date: 20100829
  Receipt Date: 20100610
  Transmission Date: 20110219
  Serious: No
  Sender: FDA-Public Use
  Company Number: US-ABBOTT-10P-163-0645935-00

PATIENT
  Sex: Female

DRUGS (5)
  1. NIASPAN [Suspect]
     Indication: BLOOD TRIGLYCERIDES INCREASED
     Dates: start: 20100201
  2. NIASPAN [Suspect]
  3. FENOFIBRATE [Concomitant]
     Indication: PRODUCT USED FOR UNKNOWN INDICATION
  4. FISH OIL [Concomitant]
     Indication: PRODUCT USED FOR UNKNOWN INDICATION
  5. PATIENT DID NOT WISH TO REPORT FULL LIST OF MEDICATIONS [Concomitant]

REACTIONS (5)
  - BLOOD GLUCOSE INCREASED [None]
  - FLUSHING [None]
  - PRURITUS [None]
  - RASH MACULAR [None]
  - SKIN BURNING SENSATION [None]
